FAERS Safety Report 4682826-2 (Version None)
Quarter: 2005Q2

REPORT INFORMATION
  Report Type: 
  Country: None (occurrence: None)
  Receive Date: 20050606
  Receipt Date: 20050525
  Transmission Date: 20051028
  Serious: Yes (Other)
  Sender: FDA-Public Use
  Company Number: FR-NOVOPROD-244446

PATIENT
  Age: 59 Year
  Sex: Male

DRUGS (3)
  1. NOVOSEVEN [Suspect]
     Indication: ILL-DEFINED DISORDER
     Dosage: 90 UG/KG, SINGLE
  2. FRESH FROZEN PLASMA [Concomitant]
  3. RED BLOOD CELLS [Concomitant]

REACTIONS (4)
  - CEREBRAL HAEMATOMA [None]
  - INTRACRANIAL PRESSURE INCREASED [None]
  - PORTAL VEIN THROMBOSIS [None]
  - PROTHROMBIN TIME PROLONGED [None]
